FAERS Safety Report 16047008 (Version 1)
Quarter: 2019Q1

REPORT INFORMATION
  Report Type: Spontaneous
  Country: PE (occurrence: PE)
  Receive Date: 20190207
  Receipt Date: 20190207
  Transmission Date: 20190418
  Serious: Yes (Disabling)
  Sender: FDA-Public Use
  Company Number: None

PATIENT
  Age: 74 Year
  Sex: Male
  Weight: 60 kg

DRUGS (3)
  1. LEVOFLOXACINO 500MG [Suspect]
     Active Substance: LEVOFLOXACIN
     Indication: PHARYNGITIS
     Route: 048
     Dates: start: 20180825, end: 20180830
  2. PONARIS 750MG (LEVOFLOXACIN HEMIHYDRATE) [Suspect]
     Active Substance: LEVOFLOXACIN
     Indication: PHARYNGITIS
     Dosage: ?          QUANTITY:1 DF DOSAGE FORM;?
     Route: 048
     Dates: start: 20180825, end: 20180830
  3. ALPRAZOLAM. [Concomitant]
     Active Substance: ALPRAZOLAM

REACTIONS (6)
  - Depression [None]
  - Systemic lupus erythematosus [None]
  - Anaemia [None]
  - Tendon pain [None]
  - Plasma cell myeloma [None]
  - Nasopharyngitis [None]

NARRATIVE: CASE EVENT DATE: 20180901
